FAERS Safety Report 10085802 (Version 1)
Quarter: 2014Q2

REPORT INFORMATION
  Report Type: Spontaneous
  Country: US (occurrence: US)
  Receive Date: 20140418
  Receipt Date: 20140418
  Transmission Date: 20141212
  Serious: No
  Sender: FDA-Public Use
  Company Number: US-PFIZER INC-2014106440

PATIENT
  Age: 61 Year
  Sex: Male
  Weight: 86.17 kg

DRUGS (9)
  1. LYRICA [Suspect]
     Indication: DIABETIC NEUROPATHY
     Dosage: 100 MG, 3X/DAY 1 (Q8H)
     Route: 048
  2. HYDROCODONE W/ACETAMINOPHEN [Concomitant]
     Dosage: 10-325MG, HALF TO 1 TAB Q 4-6 HRS
     Route: 048
  3. CRESTOR [Concomitant]
     Dosage: 40 MG, 1X/DAY (1 TABLET)
     Route: 048
  4. LISINOPRIL [Concomitant]
     Dosage: UNK
  5. GLIMEPIRIDE [Concomitant]
     Dosage: UNK
  6. TERAZOSIN HYDROCHLORIDE [Concomitant]
     Dosage: UNK
  7. TRAMADOL [Concomitant]
     Dosage: 50 MG(HALF TAB), 4X/DAY (NOT TO EXCEED 4 PER DAY)
     Route: 048
  8. METFORMIN [Concomitant]
     Dosage: UNK
  9. ZOLPIDEM [Concomitant]
     Indication: SLEEP DISORDER
     Dosage: 10 MG, AS NEEDED (QHS)
     Route: 048

REACTIONS (1)
  - Drug effect incomplete [Unknown]
